FAERS Safety Report 4962190-1 (Version None)
Quarter: 2006Q2

REPORT INFORMATION
  Report Type: 
  Country: None (occurrence: None)
  Receive Date: 20060404
  Receipt Date: 20051020
  Transmission Date: 20061013
  Serious: Yes (Hospitalization, Other)
  Sender: FDA-Public Use
  Company Number: US-MERCK-0510USA08411

PATIENT
  Age: 49 Year
  Sex: Male
  Weight: 102 kg

DRUGS (15)
  1. VIOXX [Suspect]
     Route: 048
     Dates: start: 19990715, end: 20040903
  2. ZOLOFT [Concomitant]
     Route: 065
  3. VICODIN [Concomitant]
     Route: 065
     Dates: end: 20050810
  4. ULTRAM [Concomitant]
     Route: 065
     Dates: end: 20000625
  5. IBUPROFEN [Concomitant]
     Route: 065
     Dates: end: 20021009
  6. CELEBREX [Concomitant]
     Route: 065
     Dates: start: 20021009, end: 20030108
  7. CLOMIPRAMINE HYDROCHLORIDE [Concomitant]
     Indication: DEPRESSION
     Route: 065
  8. IMIPRAMINE HYDROCHLORIDE [Concomitant]
     Indication: DEPRESSION
     Route: 065
  9. TRAZODONE HYDROCHLORIDE [Concomitant]
     Indication: DEPRESSION
     Route: 065
  10. ALBUTEROL [Concomitant]
     Route: 065
  11. VIAGRA [Concomitant]
     Route: 065
  12. GENTAMICIN [Concomitant]
     Route: 065
  13. FLEXERIL [Concomitant]
     Route: 065
  14. ERYTHROMYCIN [Concomitant]
     Route: 065
  15. HYDROCODONE HYDROCHLORIDE [Concomitant]
     Route: 065

REACTIONS (19)
  - AMNESIA [None]
  - ANGINA PECTORIS [None]
  - ANXIETY [None]
  - ARTERIOSCLEROSIS [None]
  - BACK PAIN [None]
  - BLOOD CHOLESTEROL INCREASED [None]
  - CARDIAC VALVE DISEASE [None]
  - CARDIOMYOPATHY [None]
  - CAROTID ARTERY STENOSIS [None]
  - CEREBROVASCULAR ACCIDENT [None]
  - CEREBROVASCULAR DISORDER [None]
  - CORONARY ARTERY DISEASE [None]
  - DEPRESSION [None]
  - DYSPNOEA [None]
  - HYPERCHOLESTEROLAEMIA [None]
  - HYPERLIPIDAEMIA [None]
  - HYPERTENSION [None]
  - MYOCARDIAL INFARCTION [None]
  - TOBACCO ABUSE [None]
